FAERS Safety Report 11792123 (Version 18)
Quarter: 2017Q4

REPORT INFORMATION
  Report Type: Spontaneous
  Country: US (occurrence: US)
  Receive Date: 20151201
  Receipt Date: 20171228
  Transmission Date: 20180320
  Serious: Yes (Death, Hospitalization)
  Sender: FDA-Public Use
  Company Number: US-ACTELION PHARMACEUTICALS US, INC.-A-NJ2015-125463

PATIENT
  Age: 48 Year
  Sex: Female
  Weight: 58.96 kg

DRUGS (12)
  1. VELETRI [Suspect]
     Active Substance: EPOPROSTENOL
     Indication: PULMONARY ARTERIAL HYPERTENSION
     Dosage: 13 NG/KG, PER MIN
     Route: 042
     Dates: start: 20150928, end: 20171021
  2. TRACLEER [Suspect]
     Active Substance: BOSENTAN
     Indication: PULMONARY ARTERIAL HYPERTENSION
     Dosage: 125 MG, BID
     Route: 048
     Dates: start: 20150120, end: 20171021
  3. VELETRI [Suspect]
     Active Substance: EPOPROSTENOL
     Dosage: 12 NG/KG, PER MIN
     Route: 042
     Dates: start: 20150928
  4. FUROSEMIDE. [Concomitant]
     Active Substance: FUROSEMIDE
     Dosage: 40 MG, QD
  5. LEXAPRO [Suspect]
     Active Substance: ESCITALOPRAM OXALATE
     Indication: PRODUCT USED FOR UNKNOWN INDICATION
     Dosage: 20 MG, UNK
     Route: 065
     Dates: start: 20161102
  6. WARFARIN [Concomitant]
     Active Substance: WARFARIN
  7. POTASSIUM CHLORIDE. [Concomitant]
     Active Substance: POTASSIUM CHLORIDE
     Dosage: 10 MCG, QD
  8. SPIRONOLACTONE. [Concomitant]
     Active Substance: SPIRONOLACTONE
     Dosage: 100 MG,  1/2 TABLET QD
  9. TYVASO [Concomitant]
     Active Substance: TREPROSTINIL
  10. RIOCIGUAT [Concomitant]
     Active Substance: RIOCIGUAT
     Dosage: 2.5 MG, TID
  11. RIOCIGUAT [Concomitant]
     Active Substance: RIOCIGUAT
     Dosage: 2.5 MG, QD
     Dates: start: 201508
  12. ESCITALOPRAM OXALATE. [Concomitant]
     Active Substance: ESCITALOPRAM OXALATE
     Dosage: 10 MG, QD

REACTIONS (23)
  - Fluid retention [Recovering/Resolving]
  - Headache [Unknown]
  - Dyspnoea [Unknown]
  - Haemoptysis [Recovered/Resolved]
  - Pyrexia [Recovering/Resolving]
  - Vomiting [Unknown]
  - Abdominal distension [Unknown]
  - Clostridium difficile infection [Unknown]
  - Gallbladder enlargement [Unknown]
  - Pulmonary arterial pressure increased [Unknown]
  - Muscle spasms [Unknown]
  - Cardiac failure acute [Recovering/Resolving]
  - Paracentesis [Recovering/Resolving]
  - Abdominal pain [Recovering/Resolving]
  - Malaise [Unknown]
  - Disease progression [Fatal]
  - Ascites [Not Recovered/Not Resolved]
  - Weight fluctuation [Unknown]
  - Bronchitis [Unknown]
  - Nausea [Unknown]
  - Pain in jaw [Unknown]
  - Diarrhoea [Unknown]
  - Flushing [Unknown]

NARRATIVE: CASE EVENT DATE: 20151112
